FAERS Safety Report 18942016 (Version 3)
Quarter: 2021Q2

REPORT INFORMATION
  Report Type: Spontaneous
  Country: US (occurrence: US)
  Receive Date: 20210225
  Receipt Date: 20210625
  Transmission Date: 20210717
  Serious: No
  Sender: FDA-Public Use
  Company Number: US-PFIZER INC-2021170677

PATIENT
  Age: 69 Year
  Sex: Male
  Weight: 81.63 kg

DRUGS (2)
  1. EUCRISA [Suspect]
     Active Substance: CRISABOROLE
     Indication: GENITAL ERYTHEMA
     Dosage: UNK, 2X/DAY (TWICE DAILY 100 GM TUBE)
  2. TRIAMCINOLONE [Concomitant]
     Active Substance: TRIAMCINOLONE
     Dosage: 0.1 %
     Dates: start: 20210205

REACTIONS (2)
  - Off label use [Unknown]
  - Drug ineffective for unapproved indication [Unknown]
